FAERS Safety Report 4722976-5 (Version None)
Quarter: 2005Q3

REPORT INFORMATION
  Report Type: 
  Country: None (occurrence: None)
  Receive Date: 20050719
  Receipt Date: 20041001
  Transmission Date: 20060218
  Serious: Yes (Other)
  Sender: FDA-Public Use
  Company Number: 2003147625US

PATIENT
  Age: 58 Year
  Sex: Male
  Weight: 88.9 kg

DRUGS (6)
  1. CELEBREX [Suspect]
     Indication: OSTEOARTHRITIS
     Dosage: 100 MG, BID
     Dates: start: 19990401
  2. DARVOCET-N (DEXTROPROPOXYPHENE NAPSILATE) [Concomitant]
  3. DEPAKOTE [Concomitant]
  4. DILANTIN [Concomitant]
  5. CARISOPRODOL [Concomitant]
  6. MECLIZINE [Concomitant]

REACTIONS (1)
  - ACUTE MYOCARDIAL INFARCTION [None]
